FAERS Safety Report 4481988-X (Version None)
Quarter: 2004Q4

REPORT INFORMATION
  Report Type: 
  Country: None (occurrence: None)
  Receive Date: 20041022
  Receipt Date: 20040823
  Transmission Date: 20050328
  Serious: Yes (Death)
  Sender: FDA-Public Use
  Company Number: US-ABBOTT-04P-163-0271348-00

PATIENT
  Sex: Female

DRUGS (9)
  1. RITONAVIR SOFT GELATIN CAPSULES [Suspect]
     Indication: HIV INFECTION
     Route: 048
     Dates: start: 20040408, end: 20040807
  2. TENOFOVIR [Concomitant]
     Indication: HIV INFECTION
     Route: 048
     Dates: start: 20020902
  3. ENFUVIRTIDE [Concomitant]
     Indication: HIV INFECTION
     Route: 030
     Dates: start: 20040422
  4. LAMIVUDINE [Concomitant]
     Indication: HIV INFECTION
     Route: 048
     Dates: start: 20040504
  5. BACTRIM [Concomitant]
     Indication: INFECTION PROPHYLAXIS
     Route: 048
  6. AZITHROMYCIN [Concomitant]
     Indication: INFECTION PROPHYLAXIS
     Route: 048
  7. TMC114 [Concomitant]
     Indication: HIV INFECTION
     Route: 048
     Dates: start: 20040408, end: 20040807
  8. LEVOFLOXACIN [Concomitant]
     Indication: URINARY TRACT INFECTION
  9. IBUPROFEN [Concomitant]
     Indication: DRUG USE FOR UNKNOWN INDICATION
     Dates: start: 20040801

REACTIONS (8)
  - ANAEMIA [None]
  - BACTERIAL INFECTION [None]
  - COUGH [None]
  - DYSPNOEA [None]
  - GASTROINTESTINAL HAEMORRHAGE [None]
  - HAEMATURIA [None]
  - STAPHYLOCOCCAL SEPSIS [None]
  - THROMBOCYTOPENIA [None]
